FAERS Safety Report 4474864-X (Version None)
Quarter: 2004Q4

REPORT INFORMATION
  Report Type: 
  Country: None (occurrence: None)
  Receive Date: 20041012
  Receipt Date: 20040928
  Transmission Date: 20050328
  Serious: Yes (Hospitalization)
  Sender: FDA-Public Use
  Company Number: 2004066070

PATIENT
  Age: 78 Year
  Sex: Male

DRUGS (4)
  1. SULPERAZON (CEFOPERAZONE, SULBACTAM) [Suspect]
     Indication: PNEUMONIA
     Dosage: 4 GRAM (2 GRAM, 2 IN 1 D), INTRAVENOUS
     Route: 042
     Dates: start: 20040831, end: 20040906
  2. RISPERDAL [Suspect]
     Indication: ILL-DEFINED DISORDER
     Dosage: 1 MG (1 MG, 1 IN 1 D), ORAL
     Route: 048
     Dates: start: 20040831, end: 20040909
  3. CLARITHROMYCIN [Concomitant]
  4. FAMOTIDINE [Concomitant]

REACTIONS (4)
  - ANOREXIA [None]
  - DEPRESSED LEVEL OF CONSCIOUSNESS [None]
  - HYPOCALCAEMIA [None]
  - HYPONATRAEMIA [None]
